FAERS Safety Report 7190289-0 (Version None)
Quarter: 2010Q4

REPORT INFORMATION
  Report Type: 
  Country: None (occurrence: None)
  Receive Date: 20101223
  Receipt Date: 20101217
  Transmission Date: 20110411
  Serious: No
  Sender: FDA-Public Use
  Company Number: US-BIOGENIDEC-2010BI044295

PATIENT
  Age: 35 Year
  Sex: Female

DRUGS (2)
  1. AVONEX [Suspect]
     Indication: MULTIPLE SCLEROSIS
     Route: 030
     Dates: start: 20101207
  2. FLEXERIL [Concomitant]
     Indication: PAIN

REACTIONS (6)
  - AMNESIA [None]
  - ANXIETY [None]
  - BALANCE DISORDER [None]
  - COORDINATION ABNORMAL [None]
  - GAIT DISTURBANCE [None]
  - PARAESTHESIA [None]
